FAERS Safety Report 11421796 (Version 3)
Quarter: 2016Q1

REPORT INFORMATION
  Report Type: Report from Study
  Country: GB (occurrence: GB)
  Receive Date: 20150827
  Receipt Date: 20160118
  Transmission Date: 20160525
  Serious: Yes (Other)
  Sender: FDA-Public Use
  Company Number: GB-ROCHE-1386038

PATIENT
  Age: 49 Year
  Sex: Female

DRUGS (3)
  1. BEVACIZUMAB [Suspect]
     Active Substance: BEVACIZUMAB
     Indication: OVARIAN CANCER
     Route: 042
     Dates: end: 201311
  2. BEVACIZUMAB [Suspect]
     Active Substance: BEVACIZUMAB
     Route: 042
  3. CAELYX [Suspect]
     Active Substance: DOXORUBICIN HYDROCHLORIDE
     Indication: OVARIAN CANCER
     Route: 042

REACTIONS (13)
  - Chest discomfort [Recovered/Resolved]
  - Dyspnoea exertional [Recovered/Resolved]
  - Urinary tract infection [Recovered/Resolved]
  - Joint stiffness [Recovered/Resolved]
  - Abdominal pain upper [Recovered/Resolved]
  - Drug hypersensitivity [Recovered/Resolved]
  - Dry mouth [Recovered/Resolved]
  - Chest pain [Recovered/Resolved]
  - Arthralgia [Recovered/Resolved]
  - Constipation [Recovered/Resolved]
  - Musculoskeletal stiffness [Recovered/Resolved]
  - Myalgia [Recovered/Resolved]
  - Upper respiratory tract infection [Recovered/Resolved]

NARRATIVE: CASE EVENT DATE: 2013
